FAERS Safety Report 4388946-4 (Version None)
Quarter: 2004Q3

REPORT INFORMATION
  Report Type: 
  Country: None (occurrence: None)
  Receive Date: 20040701
  Receipt Date: 20040701
  Transmission Date: 20050211
  Serious: Yes (Life-Threatening, Hospitalization)
  Sender: FDA-Public Use
  Company Number: None

PATIENT
  Sex: Male
  Weight: 92.0802 kg

DRUGS (8)
  1. IRINOTECAN 40 MG AND 100 MG PHARMACIA CORPORATION [Suspect]
     Indication: GLIOBLASTOMA MULTIFORME
     Dosage: 400MG/M2 DAYS 1,8,2 INTRAVENOUS
     Route: 042
     Dates: start: 20040524, end: 20040621
  2. RADIATION THERAPY [Suspect]
     Indication: GLIOBLASTOMA MULTIFORME
     Dosage: 200 CGY 5 TIMES OTHER
     Route: 050
     Dates: start: 20040524, end: 20040625
  3. DECADRON [Concomitant]
  4. DIFLUCAN [Concomitant]
  5. DILANTIN [Concomitant]
  6. LIPITOR [Concomitant]
  7. OMEPRAZOLE [Concomitant]
  8. NORVASC [Concomitant]

REACTIONS (9)
  - ASTHENIA [None]
  - BRAIN OEDEMA [None]
  - CONFUSIONAL STATE [None]
  - FAECAL INCONTINENCE [None]
  - HEMIPARESIS [None]
  - LACK OF SPONTANEOUS SPEECH [None]
  - PYREXIA [None]
  - SOMNOLENCE [None]
  - URINARY INCONTINENCE [None]
